FAERS Safety Report 9753313 (Version 2)
Quarter: 2014Q1

REPORT INFORMATION
  Report Type: Spontaneous
  Country: FR (occurrence: FR)
  Receive Date: 20131213
  Receipt Date: 20140324
  Transmission Date: 20141002
  Serious: Yes (Other)
  Sender: FDA-Public Use
  Company Number: FR-PFIZER INC-2013353261

PATIENT
  Age: 56 Year
  Sex: Female

DRUGS (13)
  1. LYRICA [Suspect]
     Dosage: UNK
     Dates: start: 20130907, end: 20131123
  2. MABTHERA [Suspect]
     Indication: B-CELL LYMPHOMA STAGE II
     Dosage: UNK
     Route: 042
     Dates: start: 20130516, end: 20130801
  3. WELLVONE [Suspect]
     Dosage: UNK
     Route: 048
     Dates: start: 20130906, end: 20131125
  4. ATARAX [Concomitant]
     Dosage: UNK
     Route: 048
     Dates: start: 20130907
  5. TRUVADA [Concomitant]
     Dosage: UNK
     Dates: start: 20130417
  6. ISENTRESS [Concomitant]
     Dosage: UNK
     Dates: start: 20130417
  7. PRIMPERAN [Concomitant]
  8. SERESTA [Concomitant]
  9. SKENAN [Concomitant]
  10. ACTISKENAN [Concomitant]
  11. ZOPHREN [Concomitant]
  12. FORLAX [Concomitant]
  13. VALACICLOVIR [Concomitant]

REACTIONS (1)
  - Neutropenia [Recovered/Resolved]
